FAERS Safety Report 22378332 (Version 1)
Quarter: 2023Q2

REPORT INFORMATION
  Report Type: Spontaneous
  Country: ID (occurrence: ID)
  Receive Date: 20230529
  Receipt Date: 20230529
  Transmission Date: 20230722
  Serious: Yes (Other)
  Sender: FDA-Public Use
  Company Number: ID-STERISCIENCE B.V.-2023-ST-001359

PATIENT

DRUGS (15)
  1. BUPIVACAINE [Suspect]
     Active Substance: BUPIVACAINE
     Indication: Product used for unknown indication
     Dosage: THE PATIENT^S MOTHER DOSE WAS 10 MILLIGRAM, INTRATHECAL
     Route: 064
  2. METHYLPREDNISOLONE [Suspect]
     Active Substance: METHYLPREDNISOLONE
     Indication: Product used for unknown indication
     Dosage: THE PATIENT^S MOTHER DOSE WAS 125 MILLIGRAM, TID, INJECTION, INTRAVENOUS USE
     Route: 064
  3. EPINEPHRINE [Suspect]
     Active Substance: EPINEPHRINE
     Indication: Product used for unknown indication
     Dosage: THE PATIENT^S MOTHER DOSE WAS TID, NASAL
     Route: 064
  4. ACETYLCYSTEINE [Suspect]
     Active Substance: ACETYLCYSTEINE
     Indication: Product used for unknown indication
     Dosage: THE PATIENT^S MOTHER DOSE WAS 400 MILLIGRAM, TID
     Route: 064
  5. GEFITINIB [Suspect]
     Active Substance: GEFITINIB
     Indication: Product used for unknown indication
     Dosage: UNK
     Route: 064
  6. LEVOTHYROXINE SODIUM [Suspect]
     Active Substance: LEVOTHYROXINE SODIUM
     Indication: Product used for unknown indication
     Dosage: UNK
     Route: 064
  7. CEFTIZOXIME [Suspect]
     Active Substance: CEFTIZOXIME
     Indication: Product used for unknown indication
     Dosage: THE PATIENT^S MOTHER DOSE WAS 1 GRAM, TID, INJECTION, INTRAVENOUS
     Route: 064
  8. FUROSEMIDE [Suspect]
     Active Substance: FUROSEMIDE
     Indication: Product used for unknown indication
     Dosage: THE PATIENT^S MOTHER DOSE WAS 20 MILLIGRAM, INJECTION, INTRAVENOUS
     Route: 064
  9. PANTOPRAZOLE [Suspect]
     Active Substance: PANTOPRAZOLE
     Indication: Product used for unknown indication
     Dosage: THE PATIENT^S MOTHER DOSE WAS 40 MILLIGRAM, BID, INJECTION, INTRAVENOUS
     Route: 064
  10. PROPOFOL [Suspect]
     Active Substance: PROPOFOL
     Indication: Product used for unknown indication
     Dosage: THE PATIENT^S MOTHER DOSE WAS 1.5 MG/KG
     Route: 064
  11. FENTANYL [Suspect]
     Active Substance: FENTANYL
     Indication: Product used for unknown indication
     Dosage: THE PATIENT^S MOTHER DOSE WAS 1 UG/KG
     Route: 064
  12. FENTANYL [Suspect]
     Active Substance: FENTANYL
     Dosage: THE PATIENT^S MOTHER DOSE WAS 25 UG, INTRATHECAL
     Route: 064
  13. FLUCONAZOLE [Suspect]
     Active Substance: FLUCONAZOLE
     Indication: Product used for unknown indication
     Dosage: THE PATIENT^S MOTHER DOSE WAS 800 MG
     Route: 064
  14. FLUCONAZOLE [Suspect]
     Active Substance: FLUCONAZOLE
     Dosage: THE PATIENT^S MOTHER DOSE WAS 400 MG, QD
     Route: 064
  15. DEXAMETHASONE [Suspect]
     Active Substance: DEXAMETHASONE
     Indication: Product used for unknown indication
     Dosage: THE PATIENT^S MOTHER DOSE WAS 5 MG, BID, INTRAVENOUS
     Route: 064

REACTIONS (2)
  - Premature baby [Unknown]
  - Foetal exposure during delivery [Unknown]
